FAERS Safety Report 6511126-0 (Version None)
Quarter: 2009Q4

REPORT INFORMATION
  Report Type: 
  Country: None (occurrence: None)
  Receive Date: 20091222
  Receipt Date: 20091218
  Transmission Date: 20100525
  Serious: Yes (Life-Threatening, Hospitalization)
  Sender: FDA-Public Use
  Company Number: FR-KINGPHARMUSA00001-K200901579

PATIENT
  Age: 61 Year
  Sex: Female

DRUGS (16)
  1. ALTACE [Suspect]
     Dosage: 10 MG, QD
     Route: 048
     Dates: end: 20090323
  2. LASILIX [Suspect]
     Dosage: 40 MG, QD
     Route: 048
     Dates: end: 20090323
  3. APROVEL [Suspect]
     Indication: HYPERTENSION
     Dosage: 300 MG, QD
     Route: 048
     Dates: end: 20090323
  4. MEDIATENSYL [Concomitant]
     Dosage: UNK
     Dates: end: 20090323
  5. DIFFU K [Concomitant]
     Dosage: UNK
     Dates: end: 20090323
  6. THEOPHYLLINE [Concomitant]
     Dosage: UNK
     Dates: end: 20090323
  7. MOPRAL [Concomitant]
  8. FENOFIBRATE [Concomitant]
     Dosage: UNK
     Dates: end: 20090323
  9. URSO 250 [Concomitant]
     Dosage: UNK
     Dates: end: 20090323
  10. MEPRONIZINE [Concomitant]
     Dosage: UNK
     Dates: end: 20090323
  11. FORADIL [Concomitant]
     Dosage: UNK
     Dates: end: 20090323
  12. SPIRIVA [Concomitant]
     Dosage: UNK
     Dates: end: 20090323
  13. LYRICA [Concomitant]
     Dosage: UNK
     Dates: end: 20090323
  14. DAFLON [Concomitant]
     Dosage: UNK
     Dates: end: 20090323
  15. HUMALOG MIX [Concomitant]
     Dosage: UNK
  16. INSULIN ACTRAPID [Concomitant]
     Dosage: UNK

REACTIONS (13)
  - ANAEMIA [None]
  - ANION GAP INCREASED [None]
  - ANXIETY [None]
  - BLOOD CREATININE INCREASED [None]
  - BLOOD PHOSPHORUS INCREASED [None]
  - GASTROENTERITIS [None]
  - GENERAL PHYSICAL CONDITION ABNORMAL [None]
  - HYPERKALAEMIA [None]
  - HYPERTENSION [None]
  - HYPOCALCAEMIA [None]
  - METABOLIC ACIDOSIS [None]
  - RENAL FAILURE ACUTE [None]
  - WEIGHT DECREASED [None]
